FAERS Safety Report 4421915-4 (Version None)
Quarter: 2004Q3

REPORT INFORMATION
  Report Type: 
  Country: None (occurrence: None)
  Receive Date: 20040804
  Receipt Date: 20040722
  Transmission Date: 20050211
  Serious: Yes (Other)
  Sender: FDA-Public Use
  Company Number: 2004051390

PATIENT

DRUGS (2)
  1. NEURONTIN [Suspect]
     Indication: ILL-DEFINED DISORDER
  2. CELECOXIB (CELECOXIB) [Suspect]
     Indication: ILL-DEFINED DISORDER

REACTIONS (5)
  - ACCIDENT [None]
  - INFLAMMATION [None]
  - MOVEMENT DISORDER [None]
  - PAIN [None]
  - SPINAL CORD DISORDER [None]
